FAERS Safety Report 9603467 (Version 2)
Quarter: 2013Q4

REPORT INFORMATION
  Report Type: Spontaneous
  Country: DE (occurrence: DE)
  Receive Date: 20131007
  Receipt Date: 20131108
  Transmission Date: 20140711
  Serious: Yes (Death, Life-Threatening, Hospitalization)
  Sender: FDA-Public Use
  Company Number: DE-BRISTOL-MYERS SQUIBB COMPANY-19456946

PATIENT
  Age: 69 Year
  Sex: Female

DRUGS (12)
  1. ORENCIA [Suspect]
     Indication: RHEUMATOID ARTHRITIS
     Route: 042
     Dates: start: 20130611
  2. VALSARTAN [Concomitant]
  3. BISOPROLOL [Concomitant]
  4. PREDNISOLONE [Concomitant]
  5. COLECALCIFEROL [Concomitant]
     Dosage: 1DF:1000IU
  6. AZATHIOPRINE [Concomitant]
  7. ACC [Concomitant]
  8. SIMVASTATIN [Concomitant]
  9. ESOMEPRAZOLE [Concomitant]
  10. ESOMEPRAZOLE [Concomitant]
  11. HYDROCORTISONE [Concomitant]
  12. ENOXAPARIN [Concomitant]
     Dosage: 1DF: 8000IU

REACTIONS (10)
  - Multi-organ failure [Fatal]
  - Duodenal perforation [Unknown]
  - Acute myocardial infarction [Unknown]
  - Sepsis [Unknown]
  - Polyneuropathy [Unknown]
  - Retroperitoneal abscess [Unknown]
  - Abdominal wound dehiscence [Unknown]
  - Pulmonary fibrosis [Unknown]
  - Retroperitoneal haematoma [Unknown]
  - Pneumonia [Unknown]
